FAERS Safety Report 6192148-9 (Version None)
Quarter: 2009Q2

REPORT INFORMATION
  Report Type: 
  Country: None (occurrence: None)
  Receive Date: 20090515
  Receipt Date: 20090506
  Transmission Date: 20091009
  Serious: Yes (Other)
  Sender: FDA-Public Use
  Company Number: US-ABBOTT-09P-163-0572018-00

PATIENT
  Sex: Female
  Weight: 110.78 kg

DRUGS (21)
  1. HUMIRA [Suspect]
     Indication: PSORIASIS
     Route: 058
     Dates: start: 20080101
  2. GEMFIBROZIL [Concomitant]
     Indication: BLOOD CHOLESTEROL
     Route: 048
  3. DIOVAN [Concomitant]
     Indication: HYPERTENSION
     Route: 048
  4. RAMIPRIL [Concomitant]
     Indication: HYPERTENSION
     Route: 048
  5. ISOSORBIDE [Concomitant]
     Indication: CORONARY ARTERY DISEASE
     Route: 048
  6. CARDIZEM [Concomitant]
     Indication: CARDIAC DISORDER
     Route: 048
  7. NITROGLYCERIN [Concomitant]
     Indication: ANGINA PECTORIS
     Route: 060
  8. OMEPRAZOLE [Concomitant]
     Indication: GASTROOESOPHAGEAL REFLUX DISEASE
     Dosage: UNSURE OF STRENGTH
     Route: 048
  9. CYMBALTA [Concomitant]
     Indication: DEPRESSION
     Route: 048
  10. ALPRAZOLAM [Concomitant]
     Indication: PANIC ATTACK
     Route: 048
  11. PLAVIX [Concomitant]
     Indication: CORONARY ARTERIAL STENT INSERTION
     Route: 048
  12. ADVAIR HFA [Concomitant]
     Indication: CHRONIC OBSTRUCTIVE PULMONARY DISEASE
     Dosage: 250/50-2 IN 1 DAY
     Route: 055
  13. PROVENTIL [Concomitant]
     Indication: CHRONIC OBSTRUCTIVE PULMONARY DISEASE
     Route: 055
  14. FUROSEMIDE [Concomitant]
     Indication: DIURETIC THERAPY
     Route: 048
  15. POTASSIUM CHLORIDE [Concomitant]
     Indication: ELECTROLYTE SUBSTITUTION THERAPY
     Route: 048
  16. GLUCOSAMINE + CHONDROITIN [Concomitant]
     Indication: MEDICAL DIET
     Route: 048
  17. RANEXA [Concomitant]
     Indication: CHEST PAIN
     Route: 048
  18. LORTAB [Concomitant]
     Indication: PAIN
     Dosage: 10/ AS NEEDED
     Route: 048
  19. SIMVASTATIN [Concomitant]
     Indication: BLOOD CHOLESTEROL INCREASED
     Route: 048
  20. ZETIA [Concomitant]
     Indication: DRUG USE FOR UNKNOWN INDICATION
     Route: 048
  21. ZOLPIDEM [Concomitant]
     Indication: INSOMNIA
     Route: 048

REACTIONS (4)
  - ALOPECIA [None]
  - CATARACT [None]
  - EYE INFECTION [None]
  - VISUAL IMPAIRMENT [None]
